FAERS Safety Report 18632464 (Version 1)
Quarter: 2020Q4

REPORT INFORMATION
  Report Type: Spontaneous
  Country: FR (occurrence: FR)
  Receive Date: 20201218
  Receipt Date: 20201218
  Transmission Date: 20210114
  Serious: Yes (Hospitalization)
  Sender: FDA-Public Use
  Company Number: FR-ACCORD-211084

PATIENT
  Age: 75 Year
  Sex: Female
  Weight: 92 kg

DRUGS (17)
  1. FUROSEMIDE. [Suspect]
     Active Substance: FUROSEMIDE
     Indication: PRODUCT USED FOR UNKNOWN INDICATION
     Route: 048
  2. INEXIUM [Concomitant]
     Active Substance: ESOMEPRAZOLE
  3. AMLOR [Concomitant]
     Active Substance: AMLODIPINE BESYLATE
  4. LEXOMIL [Suspect]
     Active Substance: BROMAZEPAM
     Indication: PRODUCT USED FOR UNKNOWN INDICATION
     Route: 048
     Dates: end: 20180518
  5. ALLOPURINOL. [Concomitant]
     Active Substance: ALLOPURINOL
  6. LEVOTHYROX [Concomitant]
     Active Substance: LEVOTHYROXINE
  7. CALTRATE [Concomitant]
     Active Substance: CALCIUM CARBONATE
  8. ADENURIC [Concomitant]
     Active Substance: FEBUXOSTAT
  9. COLCHICINE. [Concomitant]
     Active Substance: COLCHICINE
  10. ROPINIROLE. [Concomitant]
     Active Substance: ROPINIROLE
  11. LANTUS [Suspect]
     Active Substance: INSULIN GLARGINE
     Indication: TYPE 2 DIABETES MELLITUS
     Route: 058
  12. IXPRIM [Concomitant]
     Active Substance: ACETAMINOPHEN\TRAMADOL HYDROCHLORIDE
  13. PREVISCAN [Concomitant]
  14. PAROXETINE. [Concomitant]
     Active Substance: PAROXETINE
  15. GALVUS [Suspect]
     Active Substance: VILDAGLIPTIN
     Indication: TYPE 2 DIABETES MELLITUS
     Dosage: 50 MG
     Route: 048
  16. DIFFU K [Concomitant]
     Active Substance: POTASSIUM CHLORIDE
  17. BISOPROLOL [Suspect]
     Active Substance: BISOPROLOL
     Indication: PRODUCT USED FOR UNKNOWN INDICATION
     Route: 048
     Dates: end: 20180519

REACTIONS (1)
  - Fall [Unknown]

NARRATIVE: CASE EVENT DATE: 201802
